FAERS Safety Report 13951675 (Version 5)
Quarter: 2018Q4

REPORT INFORMATION
  Report Type: Spontaneous
  Country: US (occurrence: US)
  Receive Date: 20170908
  Receipt Date: 20181120
  Transmission Date: 20190204
  Serious: Yes (Hospitalization, Other)
  Sender: FDA-Public Use
  Company Number: US-DSJP-DSU-2017-135750

PATIENT

DRUGS (2)
  1. BENICAR [Suspect]
     Active Substance: OLMESARTAN MEDOXOMIL
     Indication: HYPERTENSION
     Dosage: 40 MG, QD
     Route: 048
     Dates: start: 20100818
  2. BENICAR [Suspect]
     Active Substance: OLMESARTAN MEDOXOMIL
     Dosage: 20 MG, UNK
     Dates: start: 20100818, end: 20130501

REACTIONS (12)
  - Gastric ulcer [Unknown]
  - Gastritis erosive [Unknown]
  - Diarrhoea [Recovered/Resolved]
  - Peptic ulcer [Unknown]
  - Acute kidney injury [Recovering/Resolving]
  - Hiatus hernia [Unknown]
  - Gastrointestinal haemorrhage [Unknown]
  - Duodenal ulcer [Unknown]
  - Diverticulitis [Unknown]
  - Erosive duodenitis [Unknown]
  - Diverticulum intestinal [Unknown]
  - Large intestine polyp [Recovered/Resolved]

NARRATIVE: CASE EVENT DATE: 201101
